FAERS Safety Report 8329455-7 (Version None)
Quarter: 2012Q2

REPORT INFORMATION
  Report Type: 
  Country: None (occurrence: None)
  Receive Date: 20120502
  Receipt Date: 20120419
  Transmission Date: 20120825
  Serious: Yes (Hospitalization)
  Sender: FDA-Public Use
  Company Number: SE-ROCHE-1054519

PATIENT
  Age: 64 Year
  Sex: Male

DRUGS (2)
  1. PREDNISOLONE [Concomitant]
  2. ACTEMRA [Suspect]
     Indication: FIBROMYALGIA
     Dosage: 460MGM
     Route: 042
     Dates: start: 20110907, end: 20111202

REACTIONS (2)
  - HEPATOCELLULAR INJURY [None]
  - FUNGAL INFECTION [None]
